FAERS Safety Report 18876283 (Version 1)
Quarter: 2021Q1

REPORT INFORMATION
  Report Type: Spontaneous
  Country: None (occurrence: US)
  Receive Date: 20210210
  Receipt Date: 20210210
  Transmission Date: 20210420
  Serious: Yes (Hospitalization)
  Sender: FDA-Public Use
  Company Number: US-COSTCO WHOLESALE CORPORATION-2106597

PATIENT

DRUGS (1)
  1. STOOL SOFTENER (DOCUSATE SODIUM) [Suspect]
     Active Substance: DOCUSATE SODIUM

REACTIONS (6)
  - Cold sweat [None]
  - Oesophagitis [None]
  - Dizziness [None]
  - Dysphagia [None]
  - Chest pain [None]
  - Dyspnoea [None]
